FAERS Safety Report 5679550-6 (Version None)
Quarter: 2008Q1

REPORT INFORMATION
  Report Type: 
  Country: None (occurrence: None)
  Receive Date: 20080324
  Receipt Date: 20080317
  Transmission Date: 20080703
  Serious: Yes (Death, Hospitalization)
  Sender: FDA-Public Use
  Company Number: US023018

PATIENT
  Age: 77 Year
  Sex: Female

DRUGS (10)
  1. ACTIQ [Suspect]
     Indication: FIBROMYALGIA
     Dosage: 200 UG QID BUCCAL
     Route: 002
     Dates: start: 20030201, end: 20071225
  2. ACTIQ [Suspect]
     Indication: FIBROMYALGIA
     Dosage: 200 UG QID BUCCAL
     Route: 002
     Dates: start: 20080101
  3. OXYCONTIN [Concomitant]
  4. ALPRAZOLAM [Concomitant]
  5. ASPIRIN [Concomitant]
  6. PLAVIX [Concomitant]
  7. PROZAC [Concomitant]
  8. CALAN [Concomitant]
  9. NOVOLOG [Concomitant]
  10. LANTUS [Concomitant]

REACTIONS (4)
  - ABNORMAL FAECES [None]
  - BODY TEMPERATURE INCREASED [None]
  - DIARRHOEA [None]
  - GALLBLADDER OBSTRUCTION [None]
